FAERS Safety Report 21300321 (Version 1)
Quarter: 2022Q3

REPORT INFORMATION
  Report Type: Spontaneous
  Country: US (occurrence: US)
  Receive Date: 20220907
  Receipt Date: 20220907
  Transmission Date: 20221027
  Serious: Yes (Other)
  Sender: FDA-Public Use
  Company Number: US-SAMSUNG BIOEPIS-SB-2022-22070

PATIENT
  Age: 17 Year
  Sex: Male

DRUGS (1)
  1. INFLIXIMAB [Suspect]
     Active Substance: INFLIXIMAB
     Indication: Intestinal tuberculosis
     Dosage: UNKNOWN
     Route: 065

REACTIONS (2)
  - Disseminated tuberculosis [Unknown]
  - Off label use [Unknown]
